FAERS Safety Report 6230273-4 (Version None)
Quarter: 2009Q2

REPORT INFORMATION
  Report Type: 
  Country: None (occurrence: None)
  Receive Date: 20090615
  Receipt Date: 20090604
  Transmission Date: 20091009
  Serious: Yes (Death)
  Sender: FDA-Public Use
  Company Number: IT-BAXTER-2009BH009894

PATIENT

DRUGS (10)
  1. CYCLOPHOSPHAMIDE [Suspect]
     Indication: HODGKIN'S DISEASE
     Route: 065
  2. CYCLOPHOSPHAMIDE [Suspect]
     Indication: HIV INFECTION
     Route: 065
  3. EPIRUBICIN HYDROCHLORIDE [Suspect]
     Indication: HODGKIN'S DISEASE
     Route: 065
  4. EPIRUBICIN HYDROCHLORIDE [Suspect]
     Indication: HIV INFECTION
     Route: 065
  5. VINORELBINE TARTRATE [Suspect]
     Indication: HODGKIN'S DISEASE
     Route: 065
  6. VINORELBINE TARTRATE [Suspect]
     Indication: HIV INFECTION
     Route: 065
  7. BLEOMYCIN GENERIC [Suspect]
     Indication: HODGKIN'S DISEASE
     Route: 065
  8. BLEOMYCIN GENERIC [Suspect]
     Indication: HIV INFECTION
     Route: 065
  9. PREDNISONE [Suspect]
     Indication: HODGKIN'S DISEASE
     Route: 065
  10. PREDNISONE [Suspect]
     Indication: HIV INFECTION
     Route: 065

REACTIONS (1)
  - HEPATIC FAILURE [None]
